FAERS Safety Report 5860892-6 (Version None)
Quarter: 2008Q3

REPORT INFORMATION
  Report Type: 
  Country: None (occurrence: None)
  Receive Date: 20080827
  Receipt Date: 20071218
  Transmission Date: 20090109
  Serious: No
  Sender: FDA-Public Use
  Company Number: US-ABBOTT-08P-163-0431754-00

PATIENT
  Sex: Male
  Weight: 102.3 kg

DRUGS (7)
  1. NIASPAN [Suspect]
     Indication: HIGH DENSITY LIPOPROTEIN DECREASED
     Route: 048
     Dates: start: 20070901, end: 20071216
  2. ALLEGRA-D [Concomitant]
     Indication: HYPERSENSITIVITY
  3. ACETYLSALICYLIC ACID SRT [Concomitant]
     Indication: ANTICOAGULANT THERAPY
  4. ACETYLSALICYLIC ACID SRT [Concomitant]
     Indication: FAMILIAL RISK FACTOR
  5. COENZYME Q10 [Concomitant]
     Indication: ASTHENIA
  6. THIOCTIC ACID [Concomitant]
     Indication: ANTIOXIDANT THERAPY
  7. GLUTAMIC ACID [Concomitant]
     Indication: SUPPLEMENTATION THERAPY

REACTIONS (1)
  - HIGH DENSITY LIPOPROTEIN DECREASED [None]
